FAERS Safety Report 24170587 (Version 1)
Quarter: 2024Q3

REPORT INFORMATION
  Report Type: Spontaneous
  Country: CH (occurrence: CH)
  Receive Date: 20240803
  Receipt Date: 20240803
  Transmission Date: 20241017
  Serious: Yes (Hospitalization)
  Sender: TEVA
  Company Number: None

PATIENT
  Age: 88 Year
  Sex: Male

DRUGS (8)
  1. AMILORIDE HYDROCHLORIDE\HYDROCHLOROTHIAZIDE [Suspect]
     Active Substance: AMILORIDE HYDROCHLORIDE\HYDROCHLOROTHIAZIDE
     Indication: Hypertension
     Dosage: COMILORID MEPHA MITE 2.5/25MG
     Route: 048
     Dates: end: 20240314
  2. MEFENAMIC ACID [Concomitant]
     Active Substance: MEFENAMIC ACID
     Indication: Pain
     Route: 048
     Dates: end: 20240314
  3. FENTANYL [Concomitant]
     Active Substance: FENTANYL\FENTANYL CITRATE
     Indication: Pain
     Dosage: 12 MCG/H, TTS CHANGE EVERY 72H
     Route: 003
  4. MAGNESIUM [Concomitant]
     Active Substance: MAGNESIUM
     Indication: Product used for unknown indication
     Dosage: 2 SEPARATED DOSES
     Route: 048
  5. ALDACTONE [Suspect]
     Active Substance: SPIRONOLACTONE
     Indication: Hypertension
     Route: 048
     Dates: end: 20240314
  6. ATENOLOL MEPHA [Concomitant]
     Indication: Hypertension
     Route: 048
  7. DAFALGAN [Concomitant]
     Active Substance: ACETAMINOPHEN
     Indication: Product used for unknown indication
     Route: 048
  8. CHOLECALCIFEROL [Concomitant]
     Active Substance: CHOLECALCIFEROL
     Indication: Product used for unknown indication
     Route: 048

REACTIONS (3)
  - Hyperkalaemia [Recovered/Resolved]
  - Drug interaction [Recovered/Resolved]
  - Contraindicated product prescribed [Recovered/Resolved]

NARRATIVE: CASE EVENT DATE: 20240314
